FAERS Safety Report 9103195 (Version 2)
Quarter: 2013Q2

REPORT INFORMATION
  Report Type: Spontaneous
  Country: US (occurrence: US)
  Receive Date: 20130219
  Receipt Date: 20130430
  Transmission Date: 20140414
  Serious: Yes (Hospitalization, Other)
  Sender: FDA-Public Use
  Company Number: US-INCYTE CORPORATION-2013IN000291

PATIENT
  Age: 81 Year
  Sex: Female
  Weight: 65 kg

DRUGS (12)
  1. JAKAFI [Suspect]
     Indication: MYELOFIBROSIS
     Dosage: 5 MG, BID
     Route: 048
     Dates: start: 2012
  2. JAKAFI [Suspect]
     Dosage: 5 MG, BID
     Route: 048
  3. EXJADE [Concomitant]
     Dosage: 1000 MG, QD
  4. LASIX [Concomitant]
     Dosage: 20 MG, PRN
  5. KCL [Concomitant]
     Dosage: 20 MEQ, PRN
  6. LORTAB [Concomitant]
     Dosage: 5/325 MG PRN
  7. ZOLPIDEM [Concomitant]
     Dosage: 10 MG, QD
  8. B12 [Concomitant]
     Dosage: Q MONTH
  9. PINDOLOL [Concomitant]
     Dosage: 5 MG, BID
  10. OMEPRAZOLE [Concomitant]
     Dosage: 20 MG, BID
  11. LEVOTHYROXINE [Concomitant]
     Dosage: 75 MCG, QD
  12. CALCIUM WITH VITAMIN D [Concomitant]

REACTIONS (5)
  - Chest pain [Recovering/Resolving]
  - Pyrexia [Recovering/Resolving]
  - Lower respiratory tract infection [Recovering/Resolving]
  - Platelet count decreased [Unknown]
  - Haemoglobin decreased [Unknown]
